FAERS Safety Report 9303466 (Version 2)
Quarter: 2013Q3

REPORT INFORMATION
  Report Type: Spontaneous
  Country: US (occurrence: US)
  Receive Date: 20130522
  Receipt Date: 20130822
  Transmission Date: 20140515
  Serious: Yes (Disabling, Other)
  Sender: FDA-Public Use
  Company Number: US-009507513-1305USA011349

PATIENT
  Sex: Male

DRUGS (2)
  1. PROSCAR [Suspect]
     Indication: PROSTATIC HYPOPLASIA
     Route: 048
  2. FINASTERIDE [Suspect]
     Dosage: 5 MG, UNK

REACTIONS (1)
  - Breast cancer [Unknown]
